FAERS Safety Report 17618492 (Version 1)
Quarter: 2020Q2

REPORT INFORMATION
  Report Type: Spontaneous
  Country: US (occurrence: US)
  Receive Date: 20200402
  Receipt Date: 20200402
  Transmission Date: 20200713
  Serious: No
  Sender: FDA-Public Use
  Company Number: US-ROCHE-2432146

PATIENT
  Sex: Female

DRUGS (10)
  1. AMOXICILLIN. [Concomitant]
     Active Substance: AMOXICILLIN
     Route: 048
  2. OMEPRAZOLE. [Concomitant]
     Active Substance: OMEPRAZOLE
  3. SIMVASTATIN. [Concomitant]
     Active Substance: SIMVASTATIN
     Route: 048
  4. ERIVEDGE [Suspect]
     Active Substance: VISMODEGIB
     Indication: PRODUCT USED FOR UNKNOWN INDICATION
     Route: 048
     Dates: start: 20150701
  5. CLOBETASOL PROPIONATE. [Concomitant]
     Active Substance: CLOBETASOL PROPIONATE
  6. LEVOTHYROXINE. [Concomitant]
     Active Substance: LEVOTHYROXINE
     Route: 048
  7. PRAMIPEXOLE. [Concomitant]
     Active Substance: PRAMIPEXOLE
     Route: 048
  8. CIPROFLOXACIN. [Concomitant]
     Active Substance: CIPROFLOXACIN
  9. CLONAZEPAM. [Concomitant]
     Active Substance: CLONAZEPAM
     Route: 048
  10. MAGNESIUM [Concomitant]
     Active Substance: MAGNESIUM

REACTIONS (3)
  - Dry mouth [Recovered/Resolved]
  - Decreased appetite [Recovered/Resolved]
  - Muscle spasms [Recovered/Resolved]
